FAERS Safety Report 16892620 (Version 8)
Quarter: 2019Q4

REPORT INFORMATION
  Report Type: Report from Study
  Country: US (occurrence: US)
  Receive Date: 20191007
  Receipt Date: 20191211
  Transmission Date: 20200122
  Serious: Yes (Hospitalization)
  Sender: FDA-Public Use
  Company Number: US-ACTELION-A-NJ2019-196311

PATIENT
  Age: 49 Year
  Sex: Female
  Weight: 92.97 kg

DRUGS (3)
  1. REMODULIN [Suspect]
     Active Substance: TREPROSTINIL
     Indication: PRODUCT USED FOR UNKNOWN INDICATION
     Dosage: 26 NG/KG, PER MIN
     Route: 065
  2. ADEMPAS [Suspect]
     Active Substance: RIOCIGUAT
     Indication: PRODUCT USED FOR UNKNOWN INDICATION
     Route: 065
  3. OPSUMIT [Suspect]
     Active Substance: MACITENTAN
     Indication: PULMONARY ARTERIAL HYPERTENSION
     Dosage: 10 MG, QD
     Route: 048

REACTIONS (24)
  - Therapy change [Unknown]
  - Fall [Unknown]
  - Catheter site pruritus [Unknown]
  - Thrombosis in device [Recovered/Resolved]
  - Catheter management [Recovered/Resolved]
  - Dyspnoea [Unknown]
  - Gait disturbance [Unknown]
  - Decreased appetite [Unknown]
  - Exercise tolerance decreased [Unknown]
  - Lung disorder [Unknown]
  - Ocular hyperaemia [Unknown]
  - Device dislocation [Unknown]
  - Catheter site extravasation [Unknown]
  - Diarrhoea [Unknown]
  - Headache [Recovering/Resolving]
  - Nasal congestion [Unknown]
  - Device malfunction [Recovered/Resolved]
  - Pain in jaw [Unknown]
  - Myalgia [Recovering/Resolving]
  - Nausea [Recovering/Resolving]
  - Swelling face [Unknown]
  - Ligament sprain [Unknown]
  - Vomiting [Recovering/Resolving]
  - Ageusia [Unknown]

NARRATIVE: CASE EVENT DATE: 20190924
